FAERS Safety Report 5325106-4 (Version None)
Quarter: 2007Q2

REPORT INFORMATION
  Report Type: 
  Country: None (occurrence: None)
  Receive Date: 20070515
  Receipt Date: 20070503
  Transmission Date: 20071010
  Serious: Yes (Other)
  Sender: FDA-Public Use
  Company Number: GB-ROCHE-496937

PATIENT
  Age: 57 Year
  Sex: Male
  Weight: 109.8 kg

DRUGS (6)
  1. XENICAL [Suspect]
     Indication: OBESITY
     Route: 048
     Dates: start: 20061017
  2. PROCHLORPERAZINE [Concomitant]
  3. RANITIDINE [Concomitant]
  4. QUININE SULFATE [Concomitant]
  5. FRUSEMIDE [Concomitant]
  6. UNSPECIFIED DRUG [Concomitant]
     Route: 055

REACTIONS (5)
  - ANXIETY [None]
  - EMOTIONAL DISTRESS [None]
  - FEELING OF DESPAIR [None]
  - HYPERVENTILATION [None]
  - SUICIDAL IDEATION [None]
